FAERS Safety Report 21777794 (Version 2)
Quarter: 2022Q4

REPORT INFORMATION
  Report Type: Other
  Country: IL (occurrence: None)
  Receive Date: 20221226
  Receipt Date: 20221227
  Transmission Date: 20230113
  Serious: No
  Sender: FDA-Public Use
  Company Number: IL-ROCHE-3076999

PATIENT
  Age: 51 Year
  Sex: Female

DRUGS (2)
  1. OCREVUS [Suspect]
     Active Substance: OCRELIZUMAB
     Indication: Primary progressive multiple sclerosis
     Route: 042
     Dates: start: 20190107
  2. OCREVUS [Suspect]
     Active Substance: OCRELIZUMAB
     Dosage: SUBSEQUENT DOSE ON 11/DEC/2022
     Route: 042
     Dates: start: 20221127

REACTIONS (3)
  - Coronavirus infection [Recovered/Resolved]
  - SARS-CoV-2 antibody test positive [Unknown]
  - Off label use [Unknown]

NARRATIVE: CASE EVENT DATE: 20221127
